FAERS Safety Report 13304839 (Version 1)
Quarter: 2017Q1

REPORT INFORMATION
  Report Type: Spontaneous
  Country: US (occurrence: US)
  Receive Date: 20170307
  Receipt Date: 20170307
  Transmission Date: 20170428
  Serious: Yes (Other)
  Sender: FDA-Public Use
  Company Number: None

PATIENT
  Age: 45 Year
  Sex: Female
  Weight: 91.8 kg

DRUGS (7)
  1. ESTRADIOL. [Concomitant]
     Active Substance: ESTRADIOL
  2. CALCIUM CITRATE-VITAMIN D [Concomitant]
     Active Substance: CALCIUM CITRATE\VITAMIN D
  3. FLUOXETINE 20 MG CAP NOR [Suspect]
     Active Substance: NORFLUOXETINE
     Indication: BIPOLAR I DISORDER
     Dosage: ?          QUANTITY:1 CAPSULE(S);?
     Route: 048
     Dates: start: 20170305, end: 20170307
  4. AMITRIPTYLINE EVA VII [Concomitant]
  5. NAPROXEN. [Concomitant]
     Active Substance: NAPROXEN
  6. RANITIDINE. [Concomitant]
     Active Substance: RANITIDINE
  7. OXYBUTIN [Concomitant]
     Active Substance: OXYBUTYNIN

REACTIONS (1)
  - Hypoaesthesia [None]

NARRATIVE: CASE EVENT DATE: 20170306
